FAERS Safety Report 8308167 (Version 6)
Quarter: 2013Q4

REPORT INFORMATION
  Report Type: Spontaneous
  Country: US (occurrence: US)
  Receive Date: 20111222
  Receipt Date: 20131217
  Transmission Date: 20140711
  Serious: Yes (Hospitalization)
  Sender: FDA-Public Use
  Company Number: US-GLAXOSMITHKLINE-A0913484A

PATIENT
  Age: 63 Year
  Sex: Male
  Weight: 90 kg

DRUGS (5)
  1. AVANDIA [Suspect]
     Indication: DIABETES MELLITUS
     Dosage: 4MG TWICE PER DAY
     Route: 048
     Dates: start: 20050114, end: 20081022
  2. METOPROLOL [Concomitant]
  3. ENALAPRIL [Concomitant]
  4. VYTORIN [Concomitant]
  5. GLUCOPHAGE [Concomitant]

REACTIONS (5)
  - Myocardial infarction [Unknown]
  - Pleural effusion [Unknown]
  - Acute coronary syndrome [Unknown]
  - Cardiovascular disorder [Unknown]
  - Cardiac disorder [Unknown]
